FAERS Safety Report 14457858 (Version 1)
Quarter: 2018Q1

REPORT INFORMATION
  Report Type: Spontaneous
  Country: US (occurrence: US)
  Receive Date: 20180126
  Receipt Date: 20180126
  Transmission Date: 20180509
  Serious: No
  Sender: FDA-Public Use
  Company Number: None

PATIENT
  Age: 10 Year
  Sex: Male
  Weight: 27.3 kg

DRUGS (1)
  1. HIZENTRA [Suspect]
     Active Substance: HUMAN IMMUNOGLOBULIN G
     Indication: IMMUNODEFICIENCY COMMON VARIABLE
     Dosage: 4MG/20ML INFUSE20MLONCE A WEEK SUBCUTANEOUSLY
     Route: 058
     Dates: start: 20150909

REACTIONS (2)
  - Headache [None]
  - Dyspnoea [None]

NARRATIVE: CASE EVENT DATE: 20171129
